FAERS Safety Report 13300516 (Version 1)
Quarter: 2017Q1

REPORT INFORMATION
  Report Type: Spontaneous
  Country: US (occurrence: US)
  Receive Date: 20170307
  Receipt Date: 20170307
  Transmission Date: 20170428
  Serious: No
  Sender: FDA-Public Use
  Company Number: US-TEVA-662326USA

PATIENT
  Sex: Female

DRUGS (1)
  1. GABAPENTIN. [Suspect]
     Active Substance: GABAPENTIN

REACTIONS (3)
  - Vision blurred [Unknown]
  - Dizziness [Unknown]
  - Product substitution issue [Unknown]
